FAERS Safety Report 9300485 (Version 6)
Quarter: 2013Q4

REPORT INFORMATION
  Report Type: Report from Study
  Country: FR (occurrence: FR)
  Receive Date: 20130521
  Receipt Date: 20131101
  Transmission Date: 20140711
  Serious: Yes (Life-Threatening, Other)
  Sender: FDA-Public Use
  Company Number: FR-MILLENNIUM PHARMACEUTICALS, INC.-2013-03883

PATIENT
  Sex: 0

DRUGS (4)
  1. VELCADE [Suspect]
     Indication: MANTLE CELL LYMPHOMA
     Dosage: 2.3 MG, CYCLIC
     Route: 058
     Dates: start: 20121217, end: 20130509
  2. LEVACT [Suspect]
     Indication: MANTLE CELL LYMPHOMA
     Dosage: 157 MG, CYCLIC
     Route: 042
     Dates: start: 20121217, end: 20130507
  3. MABTHERA [Suspect]
     Indication: MANTLE CELL LYMPHOMA
     Dosage: 657 MG, UNK
     Route: 042
     Dates: start: 20121217, end: 20130506
  4. DEXAMETHASONE [Suspect]
     Indication: MANTLE CELL LYMPHOMA
     Dosage: 40 MG, UNK
     Route: 042
     Dates: start: 20121218, end: 20130507

REACTIONS (7)
  - Respiratory failure [Recovered/Resolved]
  - Hypoxia [Recovered/Resolved]
  - Bladder disorder [Recovered/Resolved]
  - Bone marrow failure [Recovered/Resolved]
  - Pneumonia parainfluenzae viral [Recovered/Resolved]
  - Pneumonia pneumococcal [Recovered/Resolved]
  - Thrombocytopenia [Recovered/Resolved]
